FAERS Safety Report 11596675 (Version 3)
Quarter: 2016Q1

REPORT INFORMATION
  Report Type: Report from Study
  Country: AR (occurrence: AR)
  Receive Date: 20151006
  Receipt Date: 20160329
  Transmission Date: 20160525
  Serious: Yes (Other)
  Sender: FDA-Public Use
  Company Number: PHHY2015AR082687

PATIENT
  Age: 77 Year
  Sex: Male
  Weight: 93 kg

DRUGS (11)
  1. SEEBRI BREEZHALER [Suspect]
     Active Substance: GLYCOPYRROLATE
     Indication: DYSPNOEA
  2. ONBRIZE CORT [Suspect]
     Active Substance: BUDESONIDE\INDACATEROL MALEATE
     Indication: CHRONIC OBSTRUCTIVE PULMONARY DISEASE
     Dosage: 2 DF, QD
     Route: 065
  3. STARLIX [Suspect]
     Active Substance: NATEGLINIDE
     Indication: DIABETES MELLITUS
     Dosage: 2 DF, QD
     Route: 065
  4. ATENOLOL. [Concomitant]
     Active Substance: ATENOLOL
     Indication: PRODUCT USED FOR UNKNOWN INDICATION
     Route: 065
  5. FLUTIVENT [Concomitant]
     Indication: PRODUCT USED FOR UNKNOWN INDICATION
     Route: 065
  6. ONBRIZE CORT [Suspect]
     Active Substance: BUDESONIDE\INDACATEROL MALEATE
     Dosage: 3 DF, QD
     Route: 065
     Dates: start: 20150927
  7. STARLIX [Suspect]
     Active Substance: NATEGLINIDE
     Dosage: 1 DF, BID
     Route: 065
     Dates: start: 201601
  8. SEEBRI BREEZHALER [Suspect]
     Active Substance: GLYCOPYRROLATE
     Indication: FATIGUE
     Dosage: 1 DF, QD
     Route: 065
  9. SEEBRI BREEZHALER [Suspect]
     Active Substance: GLYCOPYRROLATE
     Indication: TOTAL LUNG CAPACITY DECREASED
  10. ONBRIZE CORT [Suspect]
     Active Substance: BUDESONIDE\INDACATEROL MALEATE
     Dosage: 150/400 MG
     Route: 065
  11. SPIRIVA [Concomitant]
     Active Substance: TIOTROPIUM BROMIDE MONOHYDRATE
     Indication: PRODUCT USED FOR UNKNOWN INDICATION
     Route: 065

REACTIONS (25)
  - Discomfort [Unknown]
  - Fatigue [Unknown]
  - Choking sensation [Recovering/Resolving]
  - Malaise [Recovering/Resolving]
  - Drug ineffective [Unknown]
  - Chills [Unknown]
  - Cough [Unknown]
  - Decreased appetite [Unknown]
  - Product use issue [Unknown]
  - Speech disorder [Unknown]
  - Hypophagia [Unknown]
  - Throat irritation [Unknown]
  - Weight decreased [Unknown]
  - Fall [Unknown]
  - Diabetes mellitus inadequate control [Unknown]
  - Somnolence [Unknown]
  - Anxiety [Unknown]
  - Influenza [Unknown]
  - Dry throat [Unknown]
  - Dyspnoea [Not Recovered/Not Resolved]
  - Syncope [Unknown]
  - Dizziness [Unknown]
  - Nasal discomfort [Unknown]
  - Anaemia [Not Recovered/Not Resolved]
  - Nasopharyngitis [Recovering/Resolving]

NARRATIVE: CASE EVENT DATE: 201601
